FAERS Safety Report 20563769 (Version 2)
Quarter: 2022Q1

REPORT INFORMATION
  Report Type: Spontaneous
  Country: JP (occurrence: JP)
  Receive Date: 20220308
  Receipt Date: 20220319
  Transmission Date: 20220423
  Serious: Yes (Hospitalization)
  Sender: FDA-Public Use
  Company Number: JP-JNJJAKJPN-J22015537

PATIENT
  Age: 42 Year
  Sex: Male

DRUGS (1)
  1. SIMPONI [Suspect]
     Active Substance: GOLIMUMAB
     Indication: Colitis ulcerative
     Route: 058
     Dates: start: 201807, end: 20220212

REACTIONS (1)
  - Fall [Recovering/Resolving]

NARRATIVE: CASE EVENT DATE: 20220303
